FAERS Safety Report 23848847 (Version 2)
Quarter: 2024Q2

REPORT INFORMATION
  Report Type: Spontaneous
  Country: CO (occurrence: CO)
  Receive Date: 20240513
  Receipt Date: 20240529
  Transmission Date: 20240715
  Serious: Yes (Hospitalization, Other)
  Sender: FDA-Public Use
  Company Number: CO-VANTIVE-2024VAN016770

PATIENT
  Sex: Male

DRUGS (2)
  1. DIANEAL PD-2 WITH DEXTROSE [Suspect]
     Active Substance: CALCIUM CHLORIDE\DEXTROSE\MAGNESIUM CHLORIDE\SODIUM CHLORIDE\SODIUM LACTATE
     Indication: Peritoneal dialysis
     Dosage: 6L
     Route: 033
     Dates: start: 202310
  2. DIANEAL PD-2 WITH DEXTROSE [Suspect]
     Active Substance: CALCIUM CHLORIDE\DEXTROSE\MAGNESIUM CHLORIDE\SODIUM CHLORIDE\SODIUM LACTATE
     Indication: Peritoneal dialysis
     Dosage: 6L
     Route: 033
     Dates: start: 202310

REACTIONS (3)
  - Cardiac failure congestive [Recovered/Resolved]
  - Ejection fraction decreased [Recovered/Resolved]
  - Calciphylaxis [Recovered/Resolved]
